FAERS Safety Report 8793048 (Version 2)
Quarter: 2015Q1

REPORT INFORMATION
  Report Type: Report from Study
  Country: US (occurrence: US)
  Receive Date: 20120918
  Receipt Date: 20150302
  Transmission Date: 20150721
  Serious: Yes (Death)
  Sender: FDA-Public Use
  Company Number: US-ROCHE-1102295

PATIENT
  Sex: Male
  Weight: 87 kg

DRUGS (4)
  1. AVASTIN [Suspect]
     Active Substance: BEVACIZUMAB
     Indication: LUNG NEOPLASM MALIGNANT
  2. 5-FLUOROURACIL [Concomitant]
     Active Substance: FLUOROURACIL
  3. AVASTIN [Suspect]
     Active Substance: BEVACIZUMAB
     Indication: PANCREATIC CARCINOMA
     Dosage: 5XK MG
     Route: 042
     Dates: start: 20060919
  4. LEUCOVORIN [Concomitant]
     Active Substance: LEUCOVORIN

REACTIONS (2)
  - Death [Fatal]
  - Off label use [Unknown]
